FAERS Safety Report 15259663 (Version 1)
Quarter: 2018Q4

REPORT INFORMATION
  Report Type: Spontaneous
  Country: ZA (occurrence: ZA)
  Receive Date: 20180809
  Receipt Date: 20180809
  Transmission Date: 20190204
  Serious: Yes (Hospitalization, Other)
  Sender: FDA-Public Use
  Company Number: ZA-PFIZER INC-2018316601

PATIENT
  Age: 71 Year
  Sex: Female

DRUGS (9)
  1. LOMANOR [Suspect]
     Active Substance: AMLODIPINE BESYLATE
     Dosage: UNK
  2. ZARTAN [Suspect]
     Active Substance: LOSARTAN POTASSIUM
     Dosage: UNK
  3. ROSVATOR [Suspect]
     Active Substance: ROSUVASTATIN CALCIUM
     Dosage: UNK
  4. GLAUCOSAN [Suspect]
     Active Substance: TIMOLOL MALEATE
     Dosage: UNK
  5. AUSTELL TRAMADOL [Suspect]
     Active Substance: TRAMADOL HYDROCHLORIDE
     Dosage: UNK
  6. VUSOR [Suspect]
     Active Substance: ROSUVASTATIN CALCIUM
     Dosage: UNK
  7. VIMOVO [Suspect]
     Active Substance: ESOMEPRAZOLE MAGNESIUM\NAPROXEN
     Dosage: UNK
  8. HEXA-BLOK [Suspect]
     Active Substance: ATENOLOL
     Dosage: UNK
  9. NEXOMIST [Suspect]
     Active Substance: MOMETASONE FUROATE
     Dosage: UNK

REACTIONS (2)
  - Coma [Unknown]
  - Hypersensitivity [Unknown]
